FAERS Safety Report 4811532-6 (Version None)
Quarter: 2005Q4

REPORT INFORMATION
  Report Type: 
  Country: None (occurrence: None)
  Receive Date: 20051025
  Receipt Date: 20051007
  Transmission Date: 20060501
  Serious: Yes (Hospitalization)
  Sender: FDA-Public Use
  Company Number: DSA_27248_2005

PATIENT
  Age: 93 Year
  Sex: Female

DRUGS (14)
  1. TEMESTA [Suspect]
     Dosage: 1 TAB QID PO
     Route: 048
     Dates: start: 20050630, end: 20050630
  2. ALDACTAZINE [Suspect]
     Indication: HYPERTENSION
     Dates: start: 20050630, end: 20050630
  3. TEMESTA [Suspect]
     Dosage: 1 MG TID PO
     Route: 048
     Dates: end: 20050629
  4. ALDACTAZINE [Suspect]
     Indication: HYPERTENSION
     Dosage: DF
     Dates: end: 20050629
  5. MEPRONIZINE [Suspect]
     Dates: end: 20050630
  6. TANAKAN [Concomitant]
  7. TRIVASTAL [Concomitant]
  8. DOLIPRANE [Concomitant]
  9. HEXAQUINE [Concomitant]
  10. OGAST [Concomitant]
  11. SPASFON [Concomitant]
  12. CREON ^DUPHAR^ [Concomitant]
  13. PNEUMOREL [Concomitant]
  14. ASPIRIN [Concomitant]

REACTIONS (6)
  - ATRIOVENTRICULAR BLOCK FIRST DEGREE [None]
  - DISORIENTATION [None]
  - ELECTROCARDIOGRAM T WAVE INVERSION [None]
  - FALL [None]
  - RENAL FAILURE [None]
  - VENTRICULAR EXTRASYSTOLES [None]
